FAERS Safety Report 8333288-5 (Version None)
Quarter: 2012Q2

REPORT INFORMATION
  Report Type: 
  Country: None (occurrence: None)
  Receive Date: 20120503
  Receipt Date: 20120425
  Transmission Date: 20120825
  Serious: Yes (Other)
  Sender: FDA-Public Use
  Company Number: US-BAYER-2012-040901

PATIENT
  Age: 73 Year
  Sex: Female

DRUGS (1)
  1. CIPROFLOXACIN HCL [Suspect]

REACTIONS (1)
  - TENDONITIS [None]
